FAERS Safety Report 6750466-7 (Version None)
Quarter: 2010Q2

REPORT INFORMATION
  Report Type: 
  Country: None (occurrence: None)
  Receive Date: 20100601
  Receipt Date: 20100519
  Transmission Date: 20101027
  Serious: Yes (Hospitalization, Other)
  Sender: FDA-Public Use
  Company Number: CA-GENENTECH-267014

PATIENT
  Sex: Male
  Weight: 113.4 kg

DRUGS (6)
  1. XOLAIR [Suspect]
     Indication: ASTHMA
     Dosage: 300 MG, 1/MONTH
     Route: 058
     Dates: start: 20070216
  2. XOLAIR [Suspect]
     Dosage: 300 MG, 1/MONTH
     Route: 058
     Dates: start: 20090619
  3. XOLAIR [Suspect]
  4. XOLAIR [Suspect]
     Dosage: 300 MG, Q2W
     Route: 058
     Dates: start: 20091106
  5. XOLAIR [Suspect]
     Dosage: 300 MG, 1/MONTH
     Route: 058
     Dates: start: 20100326
  6. CLOZARIL [Concomitant]
     Indication: DRUG USE FOR UNKNOWN INDICATION
     Dosage: 300 MG, 1/MONTH
     Dates: start: 20090216

REACTIONS (4)
  - FATIGUE [None]
  - FUNGAL INFECTION [None]
  - PYREXIA [None]
  - SINUSITIS [None]
